FAERS Safety Report 9528325 (Version 4)
Quarter: 2013Q4

REPORT INFORMATION
  Report Type: Report from Study
  Country: US (occurrence: US)
  Receive Date: 20130917
  Receipt Date: 20131025
  Transmission Date: 20140711
  Serious: Yes (Hospitalization)
  Sender: FDA-Public Use
  Company Number: US-PFIZER INC-2013262838

PATIENT
  Age: 35 Year
  Sex: Male
  Weight: 85 kg

DRUGS (4)
  1. CHANTIX [Suspect]
     Indication: SMOKING CESSATION THERAPY
     Dosage: 1 MG, 2X/DAY
     Route: 048
     Dates: start: 20130619, end: 20130731
  2. NICOTROL INHALER [Suspect]
     Indication: SMOKING CESSATION THERAPY
     Dosage: 10 MG, AS NEEDED
     Route: 055
     Dates: start: 20130619, end: 20130731
  3. CHANTIX [Concomitant]
     Indication: SMOKING CESSATION THERAPY
     Dosage: UNK
     Route: 048
     Dates: start: 20130725, end: 20130731
  4. METHYLPREDNISOLONE [Concomitant]
     Dosage: 4 MG TABLETS, 6 DAY SUPPLY
     Route: 048
     Dates: start: 20130930

REACTIONS (1)
  - Oesophageal spasm [Recovering/Resolving]
